FAERS Safety Report 9914491 (Version 1)
Quarter: 2014Q1

REPORT INFORMATION
  Report Type: Spontaneous
  Country: US (occurrence: US)
  Receive Date: 20140220
  Receipt Date: 20140220
  Transmission Date: 20141002
  Serious: No
  Sender: FDA-Public Use
  Company Number: US-GILEAD-2012-0053898

PATIENT
  Sex: Male

DRUGS (2)
  1. ATRIPLA [Suspect]
     Indication: HIV INFECTION
     Dosage: 3 DF, QD
  2. ATRIPLA [Suspect]
     Dosage: 1 DF, QD

REACTIONS (7)
  - Overdose [Unknown]
  - Medication error [Unknown]
  - Hyperhidrosis [Unknown]
  - Crying [Unknown]
  - Sleep disorder [Unknown]
  - Memory impairment [Unknown]
  - Tremor [Unknown]
